FAERS Safety Report 8920277 (Version 3)
Quarter: 2013Q2

REPORT INFORMATION
  Report Type: Spontaneous
  Country: BR (occurrence: BR)
  Receive Date: 20121122
  Receipt Date: 20130415
  Transmission Date: 20140414
  Serious: Yes (Hospitalization)
  Sender: FDA-Public Use
  Company Number: PHHY2012BR105381

PATIENT
  Age: 65 Year
  Sex: Female

DRUGS (4)
  1. GILENYA [Suspect]
     Indication: MULTIPLE SCLEROSIS
     Dosage: 0.5 MG, QD
     Route: 048
     Dates: start: 20121105, end: 20121106
  2. GILENYA [Suspect]
     Dosage: 0.5 MG, QD
     Route: 048
     Dates: start: 20130110
  3. RIVOTRIL [Concomitant]
     Dosage: 2 MG, UNK
  4. LEVOXIN [Concomitant]
     Dates: start: 1987

REACTIONS (8)
  - Atrioventricular block first degree [Recovered/Resolved]
  - Bradycardia [Recovered/Resolved]
  - Malaise [Recovering/Resolving]
  - Palpitations [Recovering/Resolving]
  - Dizziness [Recovered/Resolved]
  - Headache [Recovering/Resolving]
  - Blood pressure increased [Recovering/Resolving]
  - Drug administration error [Unknown]
